FAERS Safety Report 18252425 (Version 1)
Quarter: 2020Q3

REPORT INFORMATION
  Report Type: Report from Study
  Country: US (occurrence: US)
  Receive Date: 20200910
  Receipt Date: 20200910
  Transmission Date: 20201103
  Serious: Yes (Death, Other)
  Sender: FDA-Public Use
  Company Number: US-CHIESI USA, INC.-US-2020CHI000580

PATIENT

DRUGS (6)
  1. TICAGRELOR. [Suspect]
     Active Substance: TICAGRELOR
     Dosage: 90 MG, BID
     Route: 065
     Dates: start: 20191224
  2. KENGREAL [Suspect]
     Active Substance: CANGRELOR
     Indication: PERCUTANEOUS CORONARY INTERVENTION
     Dosage: 10.5 ?G/KG, SINGLE
     Route: 040
     Dates: start: 20191224, end: 20191224
  3. ASPRIN [Concomitant]
     Active Substance: ASPIRIN
     Indication: PRODUCT USED FOR UNKNOWN INDICATION
     Dosage: LESS THAN 100 MG
  4. KENGREAL [Suspect]
     Active Substance: CANGRELOR
     Dosage: 3.5 UNK
     Route: 042
     Dates: start: 20191224, end: 20191224
  5. TICAGRELOR. [Suspect]
     Active Substance: TICAGRELOR
     Indication: PRODUCT USED FOR UNKNOWN INDICATION
     Dosage: 180 MG, SINGLE
     Route: 065
     Dates: start: 20191224, end: 20191224
  6. HEPARIN [Suspect]
     Active Substance: HEPARIN SODIUM
     Indication: PRODUCT USED FOR UNKNOWN INDICATION
     Dosage: UNK
     Route: 065
     Dates: start: 20191224

REACTIONS (5)
  - Cardiogenic shock [Fatal]
  - Cardiac failure [Fatal]
  - Inappropriate schedule of product administration [Fatal]
  - Incorrect drug administration rate [Fatal]
  - Cardiac arrest [Unknown]

NARRATIVE: CASE EVENT DATE: 20191224
